FAERS Safety Report 9154870 (Version 1)
Quarter: 2013Q1

REPORT INFORMATION
  Report Type: Spontaneous
  Country: US (occurrence: US)
  Receive Date: 20130311
  Receipt Date: 20130311
  Transmission Date: 20140127
  Serious: Yes (Other)
  Sender: FDA-Public Use
  Company Number: US-ASTRAZENECA-2013SE14679

PATIENT
  Age: 65 Year
  Sex: Male

DRUGS (2)
  1. SYMBICORT [Suspect]
     Dosage: 160 MCG, TWO TIMES A DAY
     Route: 055
  2. SYMBICORT [Suspect]
     Dosage: 80/4.5, 2 PUFFS BID
     Route: 055

REACTIONS (1)
  - Malignant hypertension [Unknown]
